FAERS Safety Report 8124671-1 (Version None)
Quarter: 2012Q1

REPORT INFORMATION
  Report Type: 
  Country: None (occurrence: None)
  Receive Date: 20120209
  Receipt Date: 20120209
  Transmission Date: 20120608
  Serious: No
  Sender: FDA-Public Use
  Company Number: None

PATIENT
  Sex: Female
  Weight: 54.431 kg

DRUGS (1)
  1. CYMBALTA [Suspect]
     Indication: MAJOR DEPRESSION
     Dosage: 60.0 MG
     Route: 048
     Dates: start: 20080213, end: 20120206

REACTIONS (14)
  - ACTIVITIES OF DAILY LIVING IMPAIRED [None]
  - PANIC ATTACK [None]
  - MAJOR DEPRESSION [None]
  - DRUG WITHDRAWAL SYNDROME [None]
  - DRUG INEFFECTIVE [None]
  - ABNORMAL DREAMS [None]
  - APHAGIA [None]
  - DRUG INTOLERANCE [None]
  - TREMOR [None]
  - SUICIDAL IDEATION [None]
  - CONDITION AGGRAVATED [None]
  - IMPAIRED WORK ABILITY [None]
  - ANXIETY [None]
  - PARAESTHESIA [None]
